FAERS Safety Report 5475449-9 (Version None)
Quarter: 2007Q4

REPORT INFORMATION
  Report Type: 
  Country: None (occurrence: None)
  Receive Date: 20071003
  Receipt Date: 20070226
  Transmission Date: 20080405
  Serious: No
  Sender: FDA-Public Use
  Company Number: US-KINGPHARMUSA00001-K200500874

PATIENT

DRUGS (3)
  1. SONATA [Suspect]
     Indication: INSOMNIA
     Dosage: 10 MG, PRN
     Route: 048
     Dates: start: 20050101
  2. SONATA [Suspect]
     Dosage: 20 MG, PRN
     Route: 048
  3. ^BLOOD PRESSURE MEDICINE^ [Concomitant]
     Indication: HYPERTENSION
     Dosage: UNK, QAM
     Route: 048

REACTIONS (3)
  - DRUG INEFFECTIVE [None]
  - DYSGEUSIA [None]
  - HEADACHE [None]
